FAERS Safety Report 12475514 (Version 2)
Quarter: 2016Q3

REPORT INFORMATION
  Report Type: Spontaneous
  Country: US (occurrence: US)
  Receive Date: 20160617
  Receipt Date: 20160818
  Transmission Date: 20161109
  Serious: No
  Sender: FDA-Public Use
  Company Number: US-ASTRAZENECA-2016SE55130

PATIENT
  Sex: Female
  Weight: 122.5 kg

DRUGS (6)
  1. BYDUREON [Suspect]
     Active Substance: EXENATIDE
     Indication: DIABETES MELLITUS
     Route: 058
     Dates: start: 201602
  2. POTTASSIUM [Concomitant]
     Dosage: EVERY DAY
     Route: 048
  3. MULTI  VITAMIN [Concomitant]
     Active Substance: VITAMINS
     Dosage: EVERY DAY
     Route: 048
  4. VITAMIN B [Concomitant]
     Active Substance: VITAMIN B
     Route: 048
  5. TRADJENTA [Concomitant]
     Active Substance: LINAGLIPTIN
     Indication: GLUCOSE TOLERANCE IMPAIRED
     Route: 048
  6. AMBIEN [Concomitant]
     Active Substance: ZOLPIDEM TARTRATE
     Indication: SLEEP APNOEA SYNDROME

REACTIONS (5)
  - Increased tendency to bruise [Unknown]
  - Product solubility abnormal [Unknown]
  - Injection site bruising [Not Recovered/Not Resolved]
  - Injection site mass [Not Recovered/Not Resolved]
  - Intentional product use issue [Unknown]
